FAERS Safety Report 8310197-9 (Version None)
Quarter: 2012Q2

REPORT INFORMATION
  Report Type: 
  Country: None (occurrence: None)
  Receive Date: 20120425
  Receipt Date: 20120420
  Transmission Date: 20120825
  Serious: No
  Sender: FDA-Public Use
  Company Number: US-BAYER-2012-039918

PATIENT
  Age: 84 Year
  Sex: Male

DRUGS (2)
  1. AVELOX [Suspect]
     Indication: PNEUMONIA
  2. ZOCOR [Concomitant]

REACTIONS (2)
  - PRURITUS [None]
  - RASH [None]
